FAERS Safety Report 7634812-8 (Version None)
Quarter: 2011Q3

REPORT INFORMATION
  Report Type: 
  Country: None (occurrence: None)
  Receive Date: 20110726
  Receipt Date: 20110714
  Transmission Date: 20111222
  Serious: No
  Sender: FDA-Public Use
  Company Number: US-BIOGENIDEC-2011BI026476

PATIENT
  Sex: Male

DRUGS (1)
  1. TYSABRI [Suspect]
     Indication: MULTIPLE SCLEROSIS
     Route: 042
     Dates: start: 20100831

REACTIONS (11)
  - DEPRESSION [None]
  - MOOD SWINGS [None]
  - ARTHRALGIA [None]
  - THERMOHYPOAESTHESIA [None]
  - INSOMNIA [None]
  - HYPERTENSION [None]
  - DIABETES MELLITUS [None]
  - ASTHENIA [None]
  - ANXIETY [None]
  - MENTAL STATUS CHANGES [None]
  - TEMPERATURE INTOLERANCE [None]
